FAERS Safety Report 16900469 (Version 3)
Quarter: 2020Q1

REPORT INFORMATION
  Report Type: Spontaneous
  Country: US (occurrence: US)
  Receive Date: 20191009
  Receipt Date: 20200122
  Transmission Date: 20200409
  Serious: Yes (Other)
  Sender: FDA-Public Use
  Company Number: US-BAYER-2019-179708

PATIENT
  Age: 57 Year
  Sex: Male

DRUGS (9)
  1. KOGENATE FS [Suspect]
     Active Substance: ANTIHEMOPHILIC FACTOR, HUMAN RECOMBINANT
     Indication: FACTOR VIII DEFICIENCY
     Dosage: 1 DOSE DUE TO LEFT ANKLE BLEEDING
     Route: 042
     Dates: start: 20190907, end: 20190907
  2. KOGENATE FS [Suspect]
     Active Substance: ANTIHEMOPHILIC FACTOR, HUMAN RECOMBINANT
     Indication: FACTOR VIII DEFICIENCY
     Dosage: 1 DOSE DUE TO RIGHT SHOULDER BLEEDING
     Route: 042
     Dates: start: 20191021, end: 20191021
  3. KOGENATE FS [Suspect]
     Active Substance: ANTIHEMOPHILIC FACTOR, HUMAN RECOMBINANT
     Indication: FACTOR VIII DEFICIENCY
     Dosage: 1 DOSE DUE TO LEFT HAND BLEEDING
     Route: 042
     Dates: start: 20190913, end: 20190913
  4. KOGENATE FS [Suspect]
     Active Substance: ANTIHEMOPHILIC FACTOR, HUMAN RECOMBINANT
     Indication: FACTOR VIII DEFICIENCY
     Dosage: 1 DOSE DUE TO LEFT FINGER CUT
     Route: 042
     Dates: start: 20191015, end: 20191015
  5. KOGENATE FS [Suspect]
     Active Substance: ANTIHEMOPHILIC FACTOR, HUMAN RECOMBINANT
     Indication: FACTOR VIII DEFICIENCY
     Dosage: 1 DOSE DUE TO RIGHT THIGH BLEEDING
     Route: 042
     Dates: start: 20191109, end: 20191109
  6. KOGENATE FS [Suspect]
     Active Substance: ANTIHEMOPHILIC FACTOR, HUMAN RECOMBINANT
     Indication: FACTOR VIII DEFICIENCY
     Dosage: 2388 U, DAILY AS NEEDED
     Route: 042
     Dates: start: 20190107
  7. KOGENATE FS [Suspect]
     Active Substance: ANTIHEMOPHILIC FACTOR, HUMAN RECOMBINANT
     Indication: FACTOR VIII DEFICIENCY
     Dosage: 1 DOSE DUE TO LEFT SHOULDER BLEEDING
     Route: 042
     Dates: start: 20191029, end: 20191029
  8. KOGENATE FS [Suspect]
     Active Substance: ANTIHEMOPHILIC FACTOR, HUMAN RECOMBINANT
     Indication: FACTOR VIII DEFICIENCY
     Dosage: ACTIVE KIDNEY BLEED TREATED WITHIN 3 HOURS OF ONSET WITH 2 DOSES
     Route: 042
     Dates: start: 201909, end: 201909
  9. KOGENATE FS [Suspect]
     Active Substance: ANTIHEMOPHILIC FACTOR, HUMAN RECOMBINANT
     Indication: FACTOR VIII DEFICIENCY
     Dosage: 3545 U, DAILY AS NEEDED
     Route: 042
     Dates: start: 201306

REACTIONS (8)
  - Spontaneous haemorrhage [None]
  - Limb injury [None]
  - Haemarthrosis [None]
  - Renal haemorrhage [Not Recovered/Not Resolved]
  - Haemarthrosis [None]
  - Haemorrhage [None]
  - Haemorrhage [None]
  - Haemarthrosis [None]

NARRATIVE: CASE EVENT DATE: 201909
